FAERS Safety Report 4589345-2 (Version None)
Quarter: 2005Q1

REPORT INFORMATION
  Report Type: 
  Country: None (occurrence: None)
  Receive Date: 20050215
  Receipt Date: 20050215
  Transmission Date: 20050727
  Serious: Yes (Other)
  Sender: FDA-Public Use
  Company Number: None

PATIENT
  Sex: Female

DRUGS (1)
  1. MINITRAN [Suspect]
     Dosage: 0.4MG/HR 2 PATCHES APPLIED Q AM
     Route: 062
     Dates: start: 19960101

REACTIONS (1)
  - RASH [None]
